FAERS Safety Report 12740616 (Version 1)
Quarter: 2016Q3

REPORT INFORMATION
  Report Type: Spontaneous
  Country: US (occurrence: US)
  Receive Date: 20160914
  Receipt Date: 20160914
  Transmission Date: 20161109
  Serious: No
  Sender: FDA-Public Use
  Company Number: US-ASTRAZENECA-2016SE89470

PATIENT
  Sex: Female

DRUGS (15)
  1. JAKAFI [Suspect]
     Active Substance: RUXOLITINIB
     Indication: SPLENOMEGALY
     Dosage: 20.0MG UNKNOWN
     Route: 048
  2. FOLIC ACID. [Concomitant]
     Active Substance: FOLIC ACID
  3. ERGOCALCIFEROL. [Concomitant]
     Active Substance: ERGOCALCIFEROL
  4. GLUCOSAMINE [Concomitant]
     Active Substance: GLUCOSAMINE
  5. NAUSEA MEDIACTION [Concomitant]
  6. PRILOSEC [Suspect]
     Active Substance: OMEPRAZOLE MAGNESIUM
     Route: 048
  7. JAKAFI [Suspect]
     Active Substance: RUXOLITINIB
     Indication: SPLENOMEGALY
     Dosage: 10.0MG UNKNOWN
     Route: 048
  8. ASCORBIC ACID. [Concomitant]
     Active Substance: ASCORBIC ACID
  9. CHEMOTHERAPY [Concomitant]
     Active Substance: UNSPECIFIED INGREDIENT
  10. RETINOL [Concomitant]
     Active Substance: RETINOL
  11. TOCOPHEROL [Concomitant]
     Active Substance: TOCOPHEROL
  12. THYROID MEDICATION [Concomitant]
     Active Substance: UNSPECIFIED INGREDIENT
  13. VITAMIN B NOS [Concomitant]
     Active Substance: VITAMIN B
  14. PROCRIT [Concomitant]
     Active Substance: ERYTHROPOIETIN
  15. JAKAFI [Suspect]
     Active Substance: RUXOLITINIB
     Indication: SPLENOMEGALY
     Dosage: 15.0MG UNKNOWN
     Route: 048

REACTIONS (2)
  - Splenomegaly [Unknown]
  - Diarrhoea [Unknown]
